FAERS Safety Report 23407310 (Version 5)
Quarter: 2025Q2

REPORT INFORMATION
  Report Type: Spontaneous
  Country: US (occurrence: US)
  Receive Date: 20240116
  Receipt Date: 20250501
  Transmission Date: 20250716
  Serious: Yes (Hospitalization, Other)
  Sender: AMGEN
  Company Number: US-AMGEN-USASP2024007555

PATIENT
  Age: 54 Year
  Sex: Female

DRUGS (4)
  1. TAVNEOS [Suspect]
     Active Substance: AVACOPAN
     Indication: Granulomatosis with polyangiitis
     Dosage: 30 MILLIGRAM, BID (TAKE 3 CAPSULES (30 MG) BY MOUTH TWICE DAILY WITH FOOD)
     Route: 048
     Dates: start: 2023, end: 202312
  2. TAVNEOS [Suspect]
     Active Substance: AVACOPAN
     Indication: Anti-neutrophil cytoplasmic antibody positive vasculitis
     Route: 048
     Dates: start: 202405
  3. PREDNISONE [Suspect]
     Active Substance: PREDNISONE
     Indication: Anti-neutrophil cytoplasmic antibody positive vasculitis
     Route: 065
     Dates: start: 202401
  4. PREDNISONE [Suspect]
     Active Substance: PREDNISONE
     Route: 065
     Dates: end: 202405

REACTIONS (4)
  - Pulmonary haemorrhage [Recovering/Resolving]
  - Palpitations [Recovering/Resolving]
  - Glomerular filtration rate abnormal [Recovering/Resolving]
  - Drug ineffective [Unknown]

NARRATIVE: CASE EVENT DATE: 20231201
